FAERS Safety Report 5850764-5 (Version None)
Quarter: 2008Q3

REPORT INFORMATION
  Report Type: 
  Country: None (occurrence: None)
  Receive Date: 20080819
  Receipt Date: 20080819
  Transmission Date: 20090109
  Serious: Yes (Life-Threatening)
  Sender: FDA-Public Use
  Company Number: None

PATIENT
  Age: 43 Year
  Sex: Male
  Weight: 117.9352 kg

DRUGS (3)
  1. POTASSIUM CHLORIDE [Suspect]
     Indication: BLOOD POTASSIUM DECREASED
     Dosage: 20 MEQ  4 TIMES A DAY PO
     Route: 048
     Dates: start: 20070601, end: 20080801
  2. POTASSIUM CHLORIDE [Suspect]
     Indication: PRIMARY HYPERALDOSTERONISM
     Dosage: 20 MEQ  4 TIMES A DAY PO
     Route: 048
     Dates: start: 20070601, end: 20080801
  3. POTASSIUM CHLORIDE [Suspect]

REACTIONS (3)
  - ATRIAL FIBRILLATION [None]
  - MYALGIA [None]
  - PHARMACEUTICAL PRODUCT COMPLAINT [None]
